FAERS Safety Report 5221185-3 (Version None)
Quarter: 2007Q1

REPORT INFORMATION
  Report Type: 
  Country: None (occurrence: None)
  Receive Date: 20070126
  Receipt Date: 20070123
  Transmission Date: 20070707
  Serious: Yes (Hospitalization)
  Sender: FDA-Public Use
  Company Number: IT-ROXANE LABORATORIES, INC-2007-IT-00025IT

PATIENT
  Sex: Female

DRUGS (10)
  1. MOBIC [Suspect]
     Indication: BONE PAIN
     Route: 048
     Dates: start: 20050122, end: 20070122
  2. ASPIRIN [Suspect]
     Indication: ANTICOAGULANT THERAPY
     Route: 048
     Dates: start: 20040120, end: 20070122
  3. DELTACORTENE [Suspect]
     Indication: PAIN
     Route: 048
     Dates: start: 20050122, end: 20070122
  4. PROCAPTAN [Concomitant]
     Indication: HYPERTENSION
     Route: 048
  5. LYRICA [Concomitant]
     Route: 048
  6. FULCRO [Concomitant]
     Route: 048
  7. OMEPRAZOLE [Concomitant]
     Route: 048
  8. NORVASC [Concomitant]
     Indication: HYPERTENSION
     Route: 048
  9. XANAX [Concomitant]
     Route: 048
  10. LASIX [Concomitant]
     Route: 048

REACTIONS (2)
  - GASTRITIS EROSIVE [None]
  - HAEMATEMESIS [None]
